FAERS Safety Report 4875188-9 (Version None)
Quarter: 2006Q1

REPORT INFORMATION
  Report Type: 
  Country: None (occurrence: None)
  Receive Date: 20060109
  Receipt Date: 20041129
  Transmission Date: 20060701
  Serious: Yes (Hospitalization, Other)
  Sender: FDA-Public Use
  Company Number: US-MERCK-0411USA04247

PATIENT
  Age: 66 Year
  Sex: Female
  Weight: 61 kg

DRUGS (4)
  1. VIOXX [Suspect]
     Indication: HEADACHE
     Route: 048
     Dates: start: 19990101, end: 20041024
  2. VIOXX [Suspect]
     Indication: BACK PAIN
     Route: 048
     Dates: start: 19990101, end: 20041024
  3. ALEVE [Concomitant]
     Route: 065
  4. LORCET-HD [Concomitant]
     Route: 065

REACTIONS (30)
  - AORTIC VALVE INCOMPETENCE [None]
  - ARTERIOSCLEROSIS [None]
  - ARTHRALGIA [None]
  - BRONCHITIS VIRAL [None]
  - CAUDA EQUINA SYNDROME [None]
  - CORONARY ARTERY DISEASE [None]
  - CYSTOCELE [None]
  - DIARRHOEA HAEMORRHAGIC [None]
  - FALL [None]
  - HAEMORRHOIDS [None]
  - HEADACHE [None]
  - HYPERLIPIDAEMIA [None]
  - INTERVERTEBRAL DISC PROTRUSION [None]
  - JOINT SPRAIN [None]
  - LOWER GASTROINTESTINAL HAEMORRHAGE [None]
  - MIGRAINE [None]
  - MITRAL VALVE INCOMPETENCE [None]
  - MYOCARDIAL INFARCTION [None]
  - NECK PAIN [None]
  - ORTHOSTATIC HYPOTENSION [None]
  - PELVIC FLOOR MUSCLE WEAKNESS [None]
  - PELVIC PAIN [None]
  - PULMONARY VALVE INCOMPETENCE [None]
  - RECTOCELE [None]
  - SINUS BRADYCARDIA [None]
  - SYNCOPE [None]
  - TRICUSPID VALVE INCOMPETENCE [None]
  - UPPER RESPIRATORY TRACT INFECTION [None]
  - URINARY TRACT INFECTION [None]
  - VENTRICULAR HYPERTROPHY [None]
